FAERS Safety Report 9209373 (Version 2)
Quarter: 2013Q3

REPORT INFORMATION
  Report Type: Report from Study
  Country: PL (occurrence: PL)
  Receive Date: 20130404
  Receipt Date: 20130711
  Transmission Date: 20140515
  Serious: Yes (Hospitalization)
  Sender: FDA-Public Use
  Company Number: PL-ASTELLAS-2013US003582

PATIENT
  Age: 6 Year
  Sex: Male
  Weight: 23 kg

DRUGS (4)
  1. TACROLIMUS OINTMENT [Suspect]
     Indication: DERMATITIS ATOPIC
     Dosage: 0.03 %, UID/QD
     Route: 061
     Dates: start: 20120209
  2. TAFEN                              /00614601/ [Concomitant]
     Indication: HYPERSENSITIVITY
     Dosage: UNK UNK, UID/QD
     Route: 048
     Dates: start: 201210
  3. CEZERA [Concomitant]
     Indication: HYPERSENSITIVITY
     Dosage: UNK UNK, UID/QD
     Route: 048
     Dates: start: 201210
  4. AVAMYS [Concomitant]
     Indication: HYPERSENSITIVITY
     Dosage: UNK UNK, UID/QD
     Route: 045
     Dates: start: 201210

REACTIONS (3)
  - Asthma [Not Recovered/Not Resolved]
  - Rhinitis allergic [Not Recovered/Not Resolved]
  - Dermatitis atopic [Not Recovered/Not Resolved]
